FAERS Safety Report 9667983 (Version 1)
Quarter: 2013Q4

REPORT INFORMATION
  Report Type: Spontaneous
  Country: US (occurrence: US)
  Receive Date: 20131104
  Receipt Date: 20131104
  Transmission Date: 20140711
  Serious: Yes (Death)
  Sender: FDA-Public Use
  Company Number: US-GLAXOSMITHKLINE-A1048099A

PATIENT
  Age: 16 Year
  Sex: Male

DRUGS (1)
  1. TYKERB [Suspect]
     Indication: ADRENAL GLAND CANCER
     Dosage: 750MG TWICE PER DAY
     Route: 048
     Dates: start: 20130923, end: 20131021

REACTIONS (1)
  - Death [Fatal]
